FAERS Safety Report 9217831 (Version 2)
Quarter: 2014Q3

REPORT INFORMATION
  Report Type: Report from Study
  Country: MX (occurrence: MX)
  Receive Date: 20130408
  Receipt Date: 20140714
  Transmission Date: 20150326
  Serious: Yes (Death, Hospitalization, Other)
  Sender: FDA-Public Use
  Company Number: PHHY2013MX033448

PATIENT
  Age: 80 Year
  Sex: Male

DRUGS (2)
  1. ASPIRIN PROTECT [Concomitant]
     Active Substance: ASPIRIN
     Indication: ANTICOAGULANT THERAPY
     Dosage: 100 MG, UNK
  2. RASILEZ [Suspect]
     Active Substance: ALISKIREN
     Indication: HYPERTENSION
     Dosage: 1 DF, (300MG), DAILY
     Route: 048
     Dates: start: 201204

REACTIONS (5)
  - Hemiplegia [Not Recovered/Not Resolved]
  - Pneumonia [Fatal]
  - Cardiovascular disorder [Unknown]
  - Influenza [Fatal]
  - Embolism [Not Recovered/Not Resolved]

NARRATIVE: CASE EVENT DATE: 201204
